FAERS Safety Report 10077394 (Version 1)
Quarter: 2014Q2

REPORT INFORMATION
  Report Type: Spontaneous
  Country: US (occurrence: US)
  Receive Date: 20140414
  Receipt Date: 20140414
  Transmission Date: 20141212
  Serious: No
  Sender: FDA-Public Use
  Company Number: US-PFIZER INC-2014104015

PATIENT
  Age: 61 Year
  Sex: Female
  Weight: 65.76 kg

DRUGS (7)
  1. LYRICA [Suspect]
     Indication: FIBROMYALGIA
     Dosage: 100MG IN THE MORNING, 100MG IN THE AFTERNOON AND 200MG (2X100MG) AT NIGHT, 3X/DAY
  2. DULOXETINE [Concomitant]
     Indication: PAIN
     Dosage: UNK
  3. DULOXETINE [Concomitant]
     Indication: DEPRESSION
  4. TRAMADOL [Concomitant]
     Indication: PAIN
     Dosage: 50 MG, 3X/DAY
  5. LEVOTHYROXINE [Concomitant]
     Indication: THYROID DISORDER
     Dosage: UNK
  6. TIZANIDINE [Concomitant]
     Indication: MUSCLE RELAXANT THERAPY
     Dosage: UNK, AS NEEDED
  7. LORAZEPAM [Concomitant]
     Dosage: UNK, AS NEEDED

REACTIONS (3)
  - Muscle tightness [Unknown]
  - Neck pain [Unknown]
  - Pain [Unknown]
